FAERS Safety Report 25547896 (Version 1)
Quarter: 2025Q3

REPORT INFORMATION
  Report Type: Spontaneous
  Country: US (occurrence: US)
  Receive Date: 20250714
  Receipt Date: 20250714
  Transmission Date: 20251020
  Serious: Yes (Other)
  Sender: ROCHE
  Company Number: US-ROCHE-10000330048

PATIENT
  Age: 46 Year
  Sex: Male

DRUGS (5)
  1. XOLAIR [Suspect]
     Active Substance: OMALIZUMAB
     Indication: Product used for unknown indication
     Route: 065
     Dates: start: 20241230, end: 20250421
  2. XOLAIR [Suspect]
     Active Substance: OMALIZUMAB
     Route: 065
  3. BUSPAR [Concomitant]
     Active Substance: BUSPIRONE HYDROCHLORIDE
  4. PROTONIX [Concomitant]
     Active Substance: PANTOPRAZOLE SODIUM
     Indication: Dyspepsia
  5. VENLAFAXINE [Concomitant]
     Active Substance: VENLAFAXINE HYDROCHLORIDE

REACTIONS (11)
  - Abdominal pain upper [Unknown]
  - Pain [Unknown]
  - Paraesthesia [Unknown]
  - Headache [Unknown]
  - Dysphagia [Unknown]
  - Neck pain [Unknown]
  - Brain fog [Unknown]
  - Cardiovascular disorder [Unknown]
  - Infection parasitic [Unknown]
  - Constipation [Unknown]
  - Pain in jaw [Unknown]
